FAERS Safety Report 13953443 (Version 1)
Quarter: 2017Q3

REPORT INFORMATION
  Report Type: Report from Study
  Country: None (occurrence: NL)
  Receive Date: 20170911
  Receipt Date: 20170911
  Transmission Date: 20171128
  Serious: Yes (Hospitalization)
  Sender: FDA-Public Use
  Company Number: NL-ABBVIE-17K-114-2079119-00

PATIENT
  Sex: Male

DRUGS (1)
  1. DUODOPA [Suspect]
     Active Substance: CARBIDOPA\LEVODOPA
     Indication: PARKINSON^S DISEASE
     Dosage: MD 11.5, CD 4.8, ED 2.5
     Route: 050
     Dates: start: 20130110

REACTIONS (3)
  - Gastrointestinal motility disorder [Recovering/Resolving]
  - Device occlusion [Unknown]
  - Pancreatitis [Not Recovered/Not Resolved]
